FAERS Safety Report 20742085 (Version 1)
Quarter: 2022Q2

REPORT INFORMATION
  Report Type: Spontaneous
  Country: JP (occurrence: JP)
  Receive Date: 20220423
  Receipt Date: 20220423
  Transmission Date: 20220721
  Serious: Yes (Other)
  Sender: FDA-Public Use
  Company Number: JP-LUPIN PHARMACEUTICALS INC.-2022-06008

PATIENT
  Age: 76 Year
  Sex: Male
  Weight: 52 kg

DRUGS (5)
  1. LORAZEPAM [Suspect]
     Active Substance: LORAZEPAM
     Indication: Major depression
     Dosage: 1 MG, QD
     Route: 065
  2. ETIZOLAM [Suspect]
     Active Substance: ETIZOLAM
     Indication: Major depression
     Dosage: 0.5 MG, QD
     Route: 065
  3. SULPIRIDE [Suspect]
     Active Substance: SULPIRIDE
     Indication: Major depression
     Dosage: 100 MG, QD
     Route: 065
  4. GABAPENTIN ENACARBIL [Suspect]
     Active Substance: GABAPENTIN ENACARBIL
     Indication: Major depression
     Dosage: 300 MG, QD
     Route: 065
  5. GABAPENTIN ENACARBIL [Suspect]
     Active Substance: GABAPENTIN ENACARBIL
     Indication: Restless legs syndrome

REACTIONS (1)
  - Drug ineffective [Unknown]
